FAERS Safety Report 8619526 (Version 3)
Quarter: 2014Q1

REPORT INFORMATION
  Report Type: Spontaneous
  Country: US (occurrence: None)
  Receive Date: 20120323
  Receipt Date: 20140306
  Transmission Date: 20141002
  Serious: Yes (Hospitalization)
  Sender: FDA-Public Use
  Company Number: 163-21880-11043050

PATIENT
  Age: 66 Year
  Sex: Male
  Weight: 95.26 kg

DRUGS (13)
  1. REVLIMID (LENALIDOMIDE)(15 MILLIGRAM, CAPSULES) [Suspect]
     Indication: PLASMA CELL MYELOMA
     Dosage: 15 MG, 21 IN 21 D, PO
     Route: 048
     Dates: start: 20110119, end: 201104
  2. ACYCLOVIR (ACICLOVIR)(UNKNOWN) [Concomitant]
  3. COLACE (DOCUSATE SODIUM) (UNKNOWN) [Concomitant]
  4. LASIX (FUROSEMIDE) (UNKNOWN) [Concomitant]
  5. LISINOPRIL [Concomitant]
  6. OMEGA (OMEGA)(UNKNOWN) [Concomitant]
  7. PACERONE (AMIODARONE HYDROCHLORIDE)(UNKNOWN) [Concomitant]
  8. STOOL SOFTENER (DOCUSATE SODIUM)(UNKNOWN) [Concomitant]
  9. VELCADE (BORTEZOMIB) (UNKNOWN) [Concomitant]
  10. WARFARIN (WARFARIN) (UNKNOWN) [Concomitant]
  11. XALATAN (LATANOPROST) (UNKNOWN) [Concomitant]
  12. MULTIVITAMINS (MULTIVITAMINS) (TABLETS) [Concomitant]
  13. OMEGA 3 (FISH OIL) (UNKNOWN) [Concomitant]

REACTIONS (2)
  - Atrial fibrillation [None]
  - Neuropathy peripheral [None]
